FAERS Safety Report 19156374 (Version 1)
Quarter: 2021Q2

REPORT INFORMATION
  Report Type: Spontaneous
  Country: CA (occurrence: CA)
  Receive Date: 20210419
  Receipt Date: 20210419
  Transmission Date: 20210717
  Serious: Yes (Hospitalization)
  Sender: FDA-Public Use
  Company Number: CA-JNJFOC-20210428955

PATIENT
  Age: 62 Year
  Sex: Male

DRUGS (5)
  1. ARCOSYL [Concomitant]
     Active Substance: PERINDOPRIL ARGININE
     Route: 048
  2. PREVACID [Concomitant]
     Active Substance: LANSOPRAZOLE
  3. SYNTHROID [Concomitant]
     Active Substance: LEVOTHYROXINE SODIUM
  4. REMICADE [Suspect]
     Active Substance: INFLIXIMAB
     Indication: CROHN^S DISEASE
     Route: 042
  5. RIFAMPIN. [Concomitant]
     Active Substance: RIFAMPIN

REACTIONS (9)
  - Inappropriate schedule of product administration [Unknown]
  - Salmonella bacteraemia [Unknown]
  - Infusion site extravasation [Unknown]
  - Infusion site swelling [Unknown]
  - Infusion site pain [Unknown]
  - Pulmonary embolism [Unknown]
  - Anal fissure [Unknown]
  - Pyrexia [Unknown]
  - Gastrointestinal viral infection [Unknown]
